FAERS Safety Report 4421875-6 (Version None)
Quarter: 2004Q3

REPORT INFORMATION
  Report Type: 
  Country: None (occurrence: None)
  Receive Date: 20040806
  Receipt Date: 20040806
  Transmission Date: 20050211
  Serious: Yes (Hospitalization)
  Sender: FDA-Public Use
  Company Number: None

PATIENT
  Sex: Male

DRUGS (2)
  1. VIOXX [Suspect]
     Dosage: 25 MG DAILY ORAL
     Route: 048
  2. ASPIRIN [Suspect]
     Dosage: 81 MG DAILY ORAL
     Route: 048

REACTIONS (5)
  - GASTRIC DISORDER [None]
  - HAEMATEMESIS [None]
  - MELAENA [None]
  - NAUSEA [None]
  - VOMITING [None]
